FAERS Safety Report 9080094 (Version 1)
Quarter: 2013Q1

REPORT INFORMATION
  Report Type: Spontaneous
  Country: US (occurrence: US)
  Receive Date: 20130218
  Receipt Date: 20130218
  Transmission Date: 20140127
  Serious: Yes (Other)
  Sender: FDA-Public Use
  Company Number: US-PFIZER INC-2013060880

PATIENT
  Age: 39 Year
  Sex: Female
  Weight: 90.7 kg

DRUGS (12)
  1. ENBREL [Suspect]
     Dosage: UNK
     Dates: start: 2009, end: 2011
  2. TRAMADOL HCL [Suspect]
     Dosage: 50 MG, UNK IN 4 DAYS
     Dates: start: 1983
  3. LYRICA [Suspect]
     Dosage: UNK
  4. HUMIRA [Suspect]
     Indication: PSORIATIC ARTHROPATHY
     Dosage: 40 MG, QWK
     Dates: start: 2011
  5. DEPAKOTE [Suspect]
     Indication: PRODUCT USED FOR UNKNOWN INDICATION
     Dosage: UNK
     Dates: start: 1996, end: 2012
  6. LORAZEPAM [Suspect]
     Dosage: UNK
  7. CYMBALTA [Suspect]
     Dosage: UNK
  8. ARAVA [Concomitant]
     Dosage: UNK
  9. LEVOTHYROXINE [Concomitant]
     Dosage: UNK
  10. OMEPRAZOLE [Concomitant]
     Dosage: UNK
  11. ADVAIR [Concomitant]
     Indication: PRODUCT USED FOR UNKNOWN INDICATION
  12. TYLENOL ^JOHNSON + JOHNSON^ [Concomitant]
     Indication: PRODUCT USED FOR UNKNOWN INDICATION
     Dosage: UNK

REACTIONS (13)
  - Feeling abnormal [Unknown]
  - Respiratory depression [Unknown]
  - Arrhythmia [Unknown]
  - Adverse drug reaction [Unknown]
  - Bladder disorder [Unknown]
  - Drug interaction [Unknown]
  - Nocturia [Unknown]
  - Bladder spasm [Unknown]
  - Drug intolerance [Unknown]
  - Asthma [Unknown]
  - Blood pressure increased [Unknown]
  - Muscular weakness [Recovered/Resolved]
  - Gait disturbance [Recovered/Resolved]
